FAERS Safety Report 9412742 (Version 1)
Quarter: 2013Q3

REPORT INFORMATION
  Report Type: Report from Study
  Country: US (occurrence: US)
  Receive Date: 20130722
  Receipt Date: 20130722
  Transmission Date: 20140515
  Serious: Yes (Other)
  Sender: FDA-Public Use
  Company Number: US-ROCHE-1214348

PATIENT
  Sex: Male

DRUGS (3)
  1. AVASTIN [Suspect]
     Indication: MACULAR DEGENERATION
     Dosage: LAST DOSE :NOV/2012
     Route: 050
  2. AVASTIN [Suspect]
     Indication: OFF LABEL USE
  3. LUCENTIS [Concomitant]
     Indication: MACULAR DEGENERATION
     Route: 050
     Dates: start: 20130410

REACTIONS (2)
  - Uveitis [Recovered/Resolved]
  - Retinal haemorrhage [Unknown]
